FAERS Safety Report 11762342 (Version 1)
Quarter: 2015Q4

REPORT INFORMATION
  Report Type: Spontaneous
  Country: US (occurrence: US)
  Receive Date: 20151120
  Receipt Date: 20151120
  Transmission Date: 20160304
  Serious: No
  Sender: FDA-Public Use
  Company Number: CHPA2014US009724

PATIENT
  Age: 69 Year
  Sex: Female

DRUGS (3)
  1. VOLTAREN [Suspect]
     Active Substance: DICLOFENAC SODIUM
     Dosage: SIZE OF A PEA, BID
     Route: 061
     Dates: start: 20150427
  2. VOLTAREN [Suspect]
     Active Substance: DICLOFENAC SODIUM
     Dosage: SIZE OF PEA, TID
     Route: 061
     Dates: start: 20150427
  3. VOLTAREN [Suspect]
     Active Substance: DICLOFENAC SODIUM
     Indication: ARTHRITIS
     Dosage: UNK
     Route: 061

REACTIONS (7)
  - Arthritis [Not Recovered/Not Resolved]
  - Wrong technique in product usage process [Unknown]
  - Lacrimation increased [Not Recovered/Not Resolved]
  - Headache [Unknown]
  - Inappropriate schedule of drug administration [Unknown]
  - Skin exfoliation [Not Recovered/Not Resolved]
  - Throat irritation [Unknown]

NARRATIVE: CASE EVENT DATE: 20150427
